FAERS Safety Report 7813297-2 (Version None)
Quarter: 2011Q4

REPORT INFORMATION
  Report Type: 
  Country: None (occurrence: None)
  Receive Date: 20111013
  Receipt Date: 20111005
  Transmission Date: 20120403
  Serious: Yes (Other)
  Sender: FDA-Public Use
  Company Number: US-ASTRAZENECA-2011SE60223

PATIENT
  Age: 29 Year
  Sex: Female

DRUGS (3)
  1. NEXIUM [Suspect]
     Dosage: 1 A DAY
     Route: 048
  2. NEXIUM [Suspect]
     Dosage: 2 A DAY
     Route: 048
  3. NEXIUM [Suspect]
     Dosage: 2 A DAY
     Route: 048

REACTIONS (4)
  - APHASIA [None]
  - HEADACHE [None]
  - DISCOMFORT [None]
  - ERUCTATION [None]
